FAERS Safety Report 8802968 (Version 1)
Quarter: 2012Q4

REPORT INFORMATION
  Report Type: 
  Country: NO (occurrence: NO)
  Receive Date: 20120924
  Receipt Date: 20120924
  Transmission Date: 20130627
  Serious: Yes (Death, Other)
  Sender: FDA-Public Use
  Company Number: NO-009507513-1209NOR008838

PATIENT
  Age: 66 Year
  Sex: Female

DRUGS (3)
  1. VICTRELIS [Suspect]
     Indication: HEPATITIS C
     Route: 048
     Dates: start: 20120424, end: 20120820
  2. COPEGUS [Concomitant]
     Indication: HEPATITIS C
     Route: 048
     Dates: start: 20120424, end: 20120820
  3. PEGASYS [Concomitant]
     Indication: HEPATITIS C
     Dosage: 90 UNK
     Route: 048

REACTIONS (3)
  - Abdominal sepsis [Fatal]
  - Hepatic failure [Fatal]
  - Pancytopenia [Fatal]
